FAERS Safety Report 26102144 (Version 1)
Quarter: 2025Q4

REPORT INFORMATION
  Report Type: Spontaneous
  Country: US (occurrence: US)
  Receive Date: 20251128
  Receipt Date: 20251128
  Transmission Date: 20260117
  Serious: No
  Sender: VERTEX
  Company Number: US-VERTEX PHARMACEUTICALS-2025-019723

PATIENT
  Age: 66 Year
  Sex: Female

DRUGS (1)
  1. SUZETRIGINE [Suspect]
     Active Substance: SUZETRIGINE
     Indication: Pain
     Dosage: 50 MG, BID
     Dates: start: 20251110, end: 202511

REACTIONS (1)
  - Headache [Unknown]

NARRATIVE: CASE EVENT DATE: 20251101
